FAERS Safety Report 10218108 (Version 1)
Quarter: 2014Q2

REPORT INFORMATION
  Report Type: Spontaneous
  Country: US (occurrence: US)
  Receive Date: 20140605
  Receipt Date: 20140605
  Transmission Date: 20141212
  Serious: Yes (Hospitalization)
  Sender: FDA-Public Use
  Company Number: 2014SP002160

PATIENT
  Age: 82 Year
  Sex: Male
  Weight: 64 kg

DRUGS (1)
  1. CYTARABINE [Suspect]
     Indication: ACUTE MYELOID LEUKAEMIA
     Dates: start: 20140403

REACTIONS (4)
  - Pneumonia [Unknown]
  - Renal failure chronic [Unknown]
  - Haemorrhoids thrombosed [Unknown]
  - Inflammation [Unknown]
